FAERS Safety Report 5487978-2 (Version None)
Quarter: 2007Q4

REPORT INFORMATION
  Report Type: 
  Country: None (occurrence: None)
  Receive Date: 20071012
  Receipt Date: 20071012
  Transmission Date: 20080405
  Serious: Yes (Disabling)
  Sender: FDA-Public Use
  Company Number: None

PATIENT
  Age: 71 Year
  Sex: Female
  Weight: 90.7194 kg

DRUGS (2)
  1. DEPODUR [Suspect]
     Indication: KNEE OPERATION
     Dosage: 7.5 MG ONCE EPIDURAL
     Route: 008
     Dates: start: 20070807, end: 20070807
  2. DEPODUR [Suspect]
     Indication: PAIN MANAGEMENT
     Dosage: 7.5 MG ONCE EPIDURAL
     Route: 008
     Dates: start: 20070807, end: 20070807

REACTIONS (2)
  - RESPIRATORY DEPRESSION [None]
  - SEDATION [None]
